FAERS Safety Report 4925871-1 (Version None)
Quarter: 2006Q1

REPORT INFORMATION
  Report Type: 
  Country: None (occurrence: None)
  Receive Date: 20060228
  Receipt Date: 20050406
  Transmission Date: 20060701
  Serious: No
  Sender: FDA-Public Use
  Company Number: US-GLAXOSMITHKLINE-A0553010A

PATIENT
  Sex: Female

DRUGS (3)
  1. LAMICTAL [Suspect]
     Indication: BIPOLAR DISORDER
     Dosage: 50MG PER DAY
     Route: 048
     Dates: start: 20041001, end: 20041201
  2. EFFEXOR [Concomitant]
  3. LITHIUM [Concomitant]

REACTIONS (3)
  - DYSGEUSIA [None]
  - RASH [None]
  - TONGUE ULCERATION [None]
